FAERS Safety Report 7842888-8 (Version None)
Quarter: 2011Q4

REPORT INFORMATION
  Report Type: 
  Country: None (occurrence: None)
  Receive Date: 20111025
  Receipt Date: 20111020
  Transmission Date: 20120403
  Serious: Yes (Other)
  Sender: FDA-Public Use
  Company Number: SE-PFIZER INC-2011244370

PATIENT
  Age: 65 Year
  Sex: Female

DRUGS (5)
  1. LYRICA [Suspect]
     Indication: TREMOR
     Dosage: 50 MG, 2X/DAY
     Dates: start: 20110901, end: 20110901
  2. LYRICA [Suspect]
     Dosage: 100 MG, 2X/DAY
     Dates: start: 20110901, end: 20110901
  3. LYRICA [Suspect]
     Dosage: 50 MG, 2X/DAY
     Dates: start: 20110901, end: 20111019
  4. ZOPICLONE [Concomitant]
     Dosage: UNK
  5. OXASCAND [Concomitant]
     Dosage: UNK

REACTIONS (14)
  - DECREASED APPETITE [None]
  - TREMOR [None]
  - THIRST [None]
  - DEPRESSED MOOD [None]
  - ANXIETY [None]
  - MUSCLE FATIGUE [None]
  - FEELING DRUNK [None]
  - PALPITATIONS [None]
  - PAIN IN EXTREMITY [None]
  - POOR QUALITY SLEEP [None]
  - FEELING COLD [None]
  - INDIFFERENCE [None]
  - GAIT DISTURBANCE [None]
  - ASTHENIA [None]
